FAERS Safety Report 5007686-1 (Version None)
Quarter: 2006Q2

REPORT INFORMATION
  Report Type: 
  Country: None (occurrence: None)
  Receive Date: 20060518
  Receipt Date: 20060419
  Transmission Date: 20061013
  Serious: Yes (Hospitalization)
  Sender: FDA-Public Use
  Company Number: 2006000861

PATIENT
  Age: 67 Year
  Sex: Female

DRUGS (3)
  1. ERLOTINIB [Suspect]
     Indication: NON-SMALL CELL LUNG CANCER
     Dosage: 150 MG (QD), ORAL
     Route: 048
     Dates: start: 20060128, end: 20060406
  2. ACENOCOUMAROL (ACENOCOUMAROL) [Suspect]
     Dates: start: 20051228
  3. METOCLOPRAMIDE [Concomitant]

REACTIONS (3)
  - MALLORY-WEISS SYNDROME [None]
  - NAUSEA [None]
  - VOMITING [None]
